FAERS Safety Report 25543088 (Version 1)
Quarter: 2025Q3

REPORT INFORMATION
  Report Type: Spontaneous
  Country: US (occurrence: US)
  Receive Date: 20250711
  Receipt Date: 20250711
  Transmission Date: 20251021
  Serious: No
  Sender: GLENMARK
  Company Number: US-GLENMARK PHARMACEUTICALS-2025GMK099539

PATIENT

DRUGS (3)
  1. ADAPALENE [Suspect]
     Active Substance: ADAPALENE
     Indication: Acne
     Dosage: UNK, BID (5-6 DAYS)
     Route: 061
     Dates: start: 20250410
  2. EFFACLAR [Concomitant]
     Active Substance: ADAPALENE
     Indication: Acne
     Dosage: UNK, BID (MEDICATED GEL CLEANSER)
     Route: 061
     Dates: start: 202406
  3. EFFACLAR [Concomitant]
     Active Substance: ADAPALENE
     Indication: Acne
     Dosage: UNK, BID (EFFACLAR CLARIFYING SOLUTION, FORMULATION: TONER)
     Route: 061
     Dates: start: 202406

REACTIONS (2)
  - Dry skin [Not Recovered/Not Resolved]
  - Skin exfoliation [Not Recovered/Not Resolved]

NARRATIVE: CASE EVENT DATE: 20250411
